FAERS Safety Report 10684641 (Version 1)
Quarter: 2014Q4

REPORT INFORMATION
  Report Type: Spontaneous
  Country: US (occurrence: None)
  Receive Date: 20141230
  Receipt Date: 20141230
  Transmission Date: 20150529
  Serious: Yes (Other)
  Sender: FDA-Public Use
  Company Number: None

PATIENT
  Age: 50 Year
  Sex: Female
  Weight: 78.47 kg

DRUGS (1)
  1. DULOXETINE [Suspect]
     Active Substance: DULOXETINE
     Indication: FIBROMYALGIA
     Dosage: 1 CAPSULE ONCE DAILY TAKEN BY MOUTH
     Route: 048
     Dates: start: 20140623, end: 20141208

REACTIONS (13)
  - Abnormal dreams [None]
  - Loss of libido [None]
  - Social avoidant behaviour [None]
  - Anger [None]
  - Therapeutic response changed [None]
  - Pain [None]
  - Impaired work ability [None]
  - Anhedonia [None]
  - Product substitution issue [None]
  - Unevaluable event [None]
  - Asthenia [None]
  - Fatigue [None]
  - Nausea [None]

NARRATIVE: CASE EVENT DATE: 20141209
